FAERS Safety Report 23296576 (Version 1)
Quarter: 2023Q4

REPORT INFORMATION
  Report Type: Spontaneous
  Country: US (occurrence: US)
  Receive Date: 20231214
  Receipt Date: 20231214
  Transmission Date: 20240110
  Serious: No
  Sender: FDA-Public Use
  Company Number: US-SA-SAC20231207000999

PATIENT
  Age: 65 Year
  Sex: Male

DRUGS (2)
  1. LANTUS [Suspect]
     Active Substance: INSULIN GLARGINE
     Indication: Diabetes mellitus
     Dosage: 33 IU, QD
     Route: 065
  2. QULIPTA [Concomitant]
     Active Substance: ATOGEPANT

REACTIONS (1)
  - Glycosylated haemoglobin increased [Unknown]
